FAERS Safety Report 5427401-7 (Version None)
Quarter: 2007Q3

REPORT INFORMATION
  Report Type: 
  Country: None (occurrence: None)
  Receive Date: 20070824
  Receipt Date: 20070824
  Transmission Date: 20080115
  Serious: Yes (Life-Threatening)
  Sender: FDA-Public Use
  Company Number: None

PATIENT
  Age: 40 Year
  Sex: Male
  Weight: 83.9154 kg

DRUGS (1)
  1. RASBURICASE 7.5 MG [Suspect]
     Indication: TUMOUR LYSIS SYNDROME
     Dosage: 15 MG DAILY IV ONCE
     Route: 042

REACTIONS (3)
  - ACIDOSIS [None]
  - BLOOD METHAEMOGLOBIN PRESENT [None]
  - HYPOXIA [None]
